FAERS Safety Report 4586972-3 (Version None)
Quarter: 2005Q1

REPORT INFORMATION
  Report Type: 
  Country: None (occurrence: None)
  Receive Date: 20050218
  Receipt Date: 20050208
  Transmission Date: 20050727
  Serious: Yes (Hospitalization)
  Sender: FDA-Public Use
  Company Number: DE-JNJFOC-20050202160

PATIENT
  Age: 2 Year
  Sex: Female
  Weight: 11 kg

DRUGS (1)
  1. CONCERTA [Suspect]
     Indication: ACCIDENTAL EXPOSURE
     Dosage: THE PATIENT TOOK THE DRUG BY ACCIDENT.
     Route: 049

REACTIONS (7)
  - ACCIDENTAL EXPOSURE [None]
  - FATIGUE [None]
  - HEADACHE [None]
  - INSOMNIA [None]
  - OVERDOSE [None]
  - PALPITATIONS [None]
  - RESTLESSNESS [None]
